FAERS Safety Report 5870213-0 (Version None)
Quarter: 2008Q3

REPORT INFORMATION
  Report Type: 
  Country: None (occurrence: None)
  Receive Date: 20080902
  Receipt Date: 20080821
  Transmission Date: 20090109
  Serious: Yes (Other)
  Sender: FDA-Public Use
  Company Number: CHPA2008US13963

PATIENT
  Age: 90 Year
  Sex: Female

DRUGS (1)
  1. BENEFIBER UNKNOWN (NCH) (UNKNOWN) UNKNOWN [Suspect]
     Indication: NUTRITIONAL SUPPORT
     Dosage: 2 TSP, TID, ORAL
     Route: 048

REACTIONS (2)
  - COLON OPERATION [None]
  - FLATULENCE [None]
